FAERS Safety Report 18118908 (Version 1)
Quarter: 2020Q3

REPORT INFORMATION
  Report Type: Spontaneous
  Country: CN (occurrence: CN)
  Receive Date: 20200806
  Receipt Date: 20200806
  Transmission Date: 20201103
  Serious: Yes (Hospitalization, Other)
  Sender: FDA-Public Use
  Company Number: CN-PFIZER INC-2020296487

PATIENT
  Age: 13 Year
  Sex: Male
  Weight: 33 kg

DRUGS (1)
  1. PHARMORUBICIN [Suspect]
     Active Substance: EPIRUBICIN
     Indication: ACUTE LYMPHOCYTIC LEUKAEMIA
     Dosage: 40 MG, 1X/DAY
     Route: 041
     Dates: start: 20200623

REACTIONS (1)
  - Liver injury [Recovering/Resolving]

NARRATIVE: CASE EVENT DATE: 20200624
